FAERS Safety Report 24828673 (Version 2)
Quarter: 2025Q2

REPORT INFORMATION
  Report Type: Report from Study
  Country: US (occurrence: US)
  Receive Date: 20250110
  Receipt Date: 20250509
  Transmission Date: 20250717
  Serious: No
  Sender: SUNOVION
  Company Number: US-SMPA-2025SPA000062AA

PATIENT

DRUGS (2)
  1. ORGOVYX [Suspect]
     Active Substance: RELUGOLIX
     Indication: Prostate cancer
     Dosage: 120 MG, QD
     Route: 048
     Dates: start: 20241212
  2. ERLEADA [Concomitant]
     Active Substance: APALUTAMIDE
     Indication: Prostate cancer
     Dosage: 240 MG, QD
     Dates: start: 20241212

REACTIONS (6)
  - Rhinorrhoea [Unknown]
  - Nasal congestion [Unknown]
  - Insomnia [Unknown]
  - Hypersensitivity [Unknown]
  - Hyperhidrosis [Unknown]
  - Incorrect dose administered [Unknown]
